FAERS Safety Report 8738806 (Version 3)
Quarter: 2012Q4

REPORT INFORMATION
  Report Type: 
  Country: US (occurrence: US)
  Receive Date: 20120823
  Receipt Date: 20121031
  Transmission Date: 20130627
  Serious: No
  Sender: FDA-Public Use
  Company Number: US-009507513-1208USA000062

PATIENT
  Sex: Male
  Weight: 66.67 kg

DRUGS (4)
  1. VICTRELIS [Suspect]
     Indication: HEPATITIS C
     Dosage: 800 mg, tid
     Route: 048
     Dates: start: 20120301, end: 20121010
  2. PEGINTRON [Suspect]
     Indication: HEPATITIS C
     Dosage: 120 mcg/0.5 ml, qd
     Route: 058
     Dates: start: 20120202, end: 20121004
  3. PEGINTRON [Suspect]
     Indication: HEPATITIS C
  4. RIBASPHERE [Suspect]
     Indication: HEPATITIS C
     Dosage: 800-1000 mg, qd
     Route: 048
     Dates: start: 20120202

REACTIONS (6)
  - Anaemia [Recovering/Resolving]
  - Hypotension [Unknown]
  - Dyspnoea [Unknown]
  - Fatigue [Unknown]
  - Haemoglobin decreased [Unknown]
  - Dizziness [Unknown]
